FAERS Safety Report 20199218 (Version 1)
Quarter: 2021Q4

REPORT INFORMATION
  Report Type: Spontaneous
  Country: US (occurrence: None)
  Receive Date: 20211216
  Receipt Date: 20211216
  Transmission Date: 20220304
  Serious: Yes (Hospitalization)
  Sender: FDA-Public Use
  Company Number: None

PATIENT
  Age: 65 Year
  Sex: Male

DRUGS (3)
  1. SACUBITRIL\VALSARTAN [Suspect]
     Active Substance: SACUBITRIL\VALSARTAN
     Indication: Cardiac failure congestive
     Dosage: OTHER FREQUENCY : 1/2 TAB BID ;?
     Route: 048
     Dates: start: 20210908, end: 20211011
  2. SACUBITRIL\VALSARTAN [Suspect]
     Active Substance: SACUBITRIL\VALSARTAN
     Indication: Hypertension
  3. METOPROLOL SUCCINATE [Suspect]
     Active Substance: METOPROLOL SUCCINATE
     Indication: Cardiac failure congestive
     Dosage: OTHER FREQUENCY : 1/2 TAB EVERYDAY;?
     Route: 048
     Dates: start: 20211011

REACTIONS (3)
  - Hypotension [None]
  - Dizziness [None]
  - Therapy interrupted [None]

NARRATIVE: CASE EVENT DATE: 20211015
